FAERS Safety Report 5020019-X (Version None)
Quarter: 2006Q2

REPORT INFORMATION
  Report Type: 
  Country: None (occurrence: None)
  Receive Date: 20060601
  Receipt Date: 20060517
  Transmission Date: 20061013
  Serious: No
  Sender: FDA-Public Use
  Company Number: 2006BI002605

PATIENT
  Age: 35 Year
  Sex: Male

DRUGS (1)
  1. AVONEX [Suspect]
     Indication: MULTIPLE SCLEROSIS
     Dosage: 30 UG;QW;IM
     Route: 030
     Dates: start: 20050727, end: 20051101

REACTIONS (4)
  - IMPAIRED WORK ABILITY [None]
  - INFLUENZA LIKE ILLNESS [None]
  - PARAESTHESIA [None]
  - SENSORY DISTURBANCE [None]
